FAERS Safety Report 21454872 (Version 2)
Quarter: 2022Q4

REPORT INFORMATION
  Report Type: Report from Study
  Country: PR (occurrence: PR)
  Receive Date: 20221014
  Receipt Date: 20221122
  Transmission Date: 20230113
  Serious: Yes (Other)
  Sender: FDA-Public Use
  Company Number: PR-ABBVIE-22K-131-4509717-00

PATIENT
  Sex: Female
  Weight: 44.4 kg

DRUGS (10)
  1. HUMIRA [Suspect]
     Active Substance: ADALIMUMAB
     Indication: Rheumatoid arthritis
     Dosage: 40MG/0.4ML?STRENGTH: 40 MILLIGRAM
     Route: 058
     Dates: start: 202012
  2. HUMIRA [Suspect]
     Active Substance: ADALIMUMAB
  3. PFIZER-BIONTECH COVID-19 VACCINE [Concomitant]
     Active Substance: TOZINAMERAN
     Indication: COVID-19 immunisation
     Dosage: 1ST DOSE
     Route: 030
  4. PFIZER-BIONTECH COVID-19 VACCINE [Concomitant]
     Active Substance: TOZINAMERAN
     Indication: COVID-19 immunisation
     Dosage: 2ND DOSE
     Route: 030
  5. CARVEDILOL [Concomitant]
     Active Substance: CARVEDILOL
     Indication: Cardiac disorder
     Route: 048
  6. LOSARTAN [Concomitant]
     Active Substance: LOSARTAN
     Indication: Hypertension
     Route: 048
  7. ZOLOFT [Concomitant]
     Active Substance: SERTRALINE HYDROCHLORIDE
     Indication: Anxiety
     Route: 048
     Dates: start: 2020
  8. ZOLOFT [Concomitant]
     Active Substance: SERTRALINE HYDROCHLORIDE
     Indication: Anxiety
     Route: 048
  9. IVERMECTIN [Concomitant]
     Active Substance: IVERMECTIN
     Indication: Arthropod bite
     Dosage: 1ST DOSE?4 TABLETS ON THE FIRST DAY
     Route: 048
     Dates: start: 2022, end: 2022
  10. IVERMECTIN [Concomitant]
     Active Substance: IVERMECTIN
     Indication: Arthropod bite
     Dosage: 2ND DOSE?4 TABLETS ONE WEEK AFTER FIRST DOSE
     Route: 048
     Dates: start: 2022, end: 2022

REACTIONS (10)
  - Arthropod bite [Not Recovered/Not Resolved]
  - Subcutaneous haematoma [Not Recovered/Not Resolved]
  - Fall [Not Recovered/Not Resolved]
  - Bubonic plague [Not Recovered/Not Resolved]
  - Intervertebral discitis [Recovering/Resolving]
  - Intervertebral disc disorder [Not Recovered/Not Resolved]
  - Pain [Not Recovered/Not Resolved]
  - Pruritus [Recovering/Resolving]
  - Bedridden [Not Recovered/Not Resolved]
  - Panic attack [Recovered/Resolved]

NARRATIVE: CASE EVENT DATE: 20200101
